FAERS Safety Report 6725411-0 (Version None)
Quarter: 2010Q2

REPORT INFORMATION
  Report Type: 
  Country: None (occurrence: None)
  Receive Date: 20100514
  Receipt Date: 20100430
  Transmission Date: 20101027
  Serious: Yes (Hospitalization)
  Sender: FDA-Public Use
  Company Number: US-ELI_LILLY_AND_COMPANY-US201005000527

PATIENT
  Sex: Male

DRUGS (7)
  1. FORTEO [Suspect]
     Indication: OSTEOPOROSIS
     Dosage: 20 UG, DAILY (1/D)
     Dates: start: 20090709, end: 20100403
  2. SINGULAIR [Concomitant]
     Dosage: 10 MG, DAILY (1/D)
  3. LANOXIN [Concomitant]
     Dosage: 0.25 MG, DAILY (1/D)
  4. LEVOTHYROXINE SODIUM [Concomitant]
     Dosage: 0.75 MG, DAILY (1/D)
  5. ERYTHROMYCIN OPTHALMIC OINTMENT USP 23 [Concomitant]
     Dosage: 5 MG, DAILY (1/D)
     Route: 047
  6. CENTRUM SILVER [Concomitant]
     Dosage: UNK, DAILY (1/D)
  7. SPIRIVA [Concomitant]
     Dosage: 18 UG, DAILY (1/D)
     Route: 055

REACTIONS (3)
  - CEREBROVASCULAR ACCIDENT [None]
  - OESOPHAGEAL ACHALASIA [None]
  - THROMBOSIS [None]
